FAERS Safety Report 24204354 (Version 1)
Quarter: 2024Q3

REPORT INFORMATION
  Report Type: Spontaneous
  Country: US (occurrence: US)
  Receive Date: 20240813
  Receipt Date: 20240813
  Transmission Date: 20241017
  Serious: No
  Sender: INCYTE
  Company Number: US-INCYTE CORPORATION-2024IN008157

PATIENT

DRUGS (1)
  1. JAKAFI [Suspect]
     Active Substance: RUXOLITINIB
     Indication: Polycythaemia vera
     Dosage: 20 MILLIGRAM (TAKE 1/2 TABLET), QOD
     Route: 048
     Dates: start: 202005

REACTIONS (2)
  - Wrist fracture [Unknown]
  - Wrong technique in product usage process [Unknown]
